FAERS Safety Report 4722745-6 (Version None)
Quarter: 2005Q3

REPORT INFORMATION
  Report Type: 
  Country: None (occurrence: None)
  Receive Date: 20050719
  Receipt Date: 20041007
  Transmission Date: 20060218
  Serious: Yes (Hospitalization)
  Sender: FDA-Public Use
  Company Number: 2004237749US

PATIENT
  Age: 86 Year
  Sex: Male
  Weight: 70.7 kg

DRUGS (1)
  1. CELEBREX [Suspect]
     Indication: ARTHRITIS
     Dosage: 200 MG, QD, ORAL
     Route: 048
     Dates: start: 20040801

REACTIONS (4)
  - CELLULITIS [None]
  - DRUG INEFFECTIVE [None]
  - OEDEMA PERIPHERAL [None]
  - TINEA PEDIS [None]
